FAERS Safety Report 11500131 (Version 1)
Quarter: 2015Q3

REPORT INFORMATION
  Report Type: Spontaneous
  Country: DZ (occurrence: DZ)
  Receive Date: 20150914
  Receipt Date: 20150914
  Transmission Date: 20151125
  Serious: Yes (Disabling)
  Sender: FDA-Public Use
  Company Number: DZ-SA-2015SA136685

PATIENT
  Age: 42 Year
  Sex: Male

DRUGS (2)
  1. AMAREL [Suspect]
     Active Substance: GLIMEPIRIDE
     Indication: DIABETES MELLITUS
     Route: 048
  2. MEDROL [Suspect]
     Active Substance: METHYLPREDNISOLONE
     Indication: INFLAMMATION
     Route: 065

REACTIONS (3)
  - Gait disturbance [Unknown]
  - Hyperglycaemia [Unknown]
  - Back pain [Unknown]
